APPROVED DRUG PRODUCT: ENJUVIA
Active Ingredient: ESTROGENS, CONJUGATED SYNTHETIC B
Strength: 0.9MG
Dosage Form/Route: TABLET;ORAL
Application: N021443 | Product #005
Applicant: ASPEN PHARMA USA INC
Approved: Apr 27, 2007 | RLD: No | RS: No | Type: DISCN